FAERS Safety Report 16249415 (Version 1)
Quarter: 2019Q2

REPORT INFORMATION
  Report Type: Spontaneous
  Country: US (occurrence: US)
  Receive Date: 20190429
  Receipt Date: 20190429
  Transmission Date: 20190711
  Serious: No
  Sender: FDA-Public Use
  Company Number: US-TEVA-2019-US-1041381

PATIENT
  Age: 25 Year
  Sex: Female

DRUGS (1)
  1. AVIANE [Suspect]
     Active Substance: ETHINYL ESTRADIOL\LEVONORGESTREL
     Indication: CONTRACEPTION
     Dosage: DOSE STRENGTH:  LEVONORGESTREL 0.10 MG/ ETHYLESTERADIOL 0.02 MG
     Dates: start: 201812

REACTIONS (4)
  - Swelling [Unknown]
  - Pruritus [Unknown]
  - Hypersensitivity [Unknown]
  - Rash generalised [Unknown]

NARRATIVE: CASE EVENT DATE: 20190416
